FAERS Safety Report 9711205 (Version 4)
Quarter: 2014Q1

REPORT INFORMATION
  Report Type: Report from Study
  Country: IT (occurrence: IT)
  Receive Date: 20131126
  Receipt Date: 20140310
  Transmission Date: 20141002
  Serious: Yes (Death, Life-Threatening, Hospitalization)
  Sender: FDA-Public Use
  Company Number: IT-TEVA-446514USA

PATIENT
  Sex: Female

DRUGS (18)
  1. BENDAMUSTINE [Suspect]
     Indication: PLASMA CELL MYELOMA
     Route: 042
     Dates: start: 20131015, end: 20131025
  2. VELCADE [Suspect]
     Indication: PLASMA CELL MYELOMA
     Dates: start: 20121010, end: 20121019
  3. VELCADE [Suspect]
     Dates: start: 20121108, end: 20121120
  4. VELCADE [Suspect]
     Dates: start: 20121127, end: 20121204
  5. VELCADE [Suspect]
     Dates: start: 20121228, end: 20130108
  6. VELCADE [Suspect]
     Dates: start: 20131015, end: 20131025
  7. THALIDOMIDE [Suspect]
     Indication: PLASMA CELL MYELOMA
     Dates: start: 20121010, end: 20121019
  8. THALIDOMIDE [Suspect]
     Dates: start: 20121108, end: 20121120
  9. THALIDOMIDE [Suspect]
     Dates: start: 20121127, end: 20121204
  10. THALIDOMIDE [Suspect]
     Dates: start: 20121228, end: 20130108
  11. DEXAMETHASONE [Suspect]
     Indication: PLASMA CELL MYELOMA
     Dates: start: 20121010, end: 20121019
  12. DEXAMETHASONE [Suspect]
     Dates: start: 20121108, end: 20121120
  13. DEXAMETHASONE [Suspect]
     Dates: start: 20121127, end: 20121204
  14. DEXAMETHASONE [Suspect]
     Dates: start: 20121228, end: 20130108
  15. DEXAMETHASONE [Suspect]
     Dates: start: 20131015, end: 20131025
  16. ENDOXAN [Suspect]
     Indication: PLASMA CELL MYELOMA
     Dates: start: 20130115, end: 20130115
  17. MELPHALAN [Suspect]
     Indication: PLASMA CELL MYELOMA
     Dates: start: 20130223, end: 20130223
  18. ZOMETA [Concomitant]
     Indication: PRODUCT USED FOR UNKNOWN INDICATION
     Dates: start: 20121008

REACTIONS (3)
  - Atrial fibrillation [Fatal]
  - Plasma cell myeloma [Fatal]
  - Renal failure acute [Fatal]
